FAERS Safety Report 23311698 (Version 2)
Quarter: 2023Q4

REPORT INFORMATION
  Report Type: Spontaneous
  Country: JP (occurrence: JP)
  Receive Date: 20231219
  Receipt Date: 20231220
  Transmission Date: 20240109
  Serious: No
  Sender: FDA-Public Use
  Company Number: JP-UCBJ-CD202312617UCBPHAPROD

PATIENT
  Age: 55 Year

DRUGS (1)
  1. VIMPAT [Suspect]
     Active Substance: LACOSAMIDE
     Indication: Epilepsy
     Dosage: 50 MILLIGRAM IN THE MORNING AND THE EVENING
     Route: 048

REACTIONS (1)
  - Drug ineffective [Unknown]
